FAERS Safety Report 6055098-4 (Version None)
Quarter: 2009Q1

REPORT INFORMATION
  Report Type: 
  Country: None (occurrence: None)
  Receive Date: 20090123
  Receipt Date: 20090111
  Transmission Date: 20090719
  Serious: Yes (Death)
  Sender: FDA-Public Use
  Company Number: 144109

PATIENT
  Age: 46 Year
  Sex: 0

DRUGS (8)
  1. VINCRISTINE SULPHATE INJECTION, USP (VINCRISTINE) [Suspect]
     Indication: HODGKIN'S DISEASE
  2. DOXORUBICIN HCL [Suspect]
     Indication: HODGKIN'S DISEASE
  3. BLEOMYCIN SULFATE [Suspect]
     Indication: HODGKIN'S DISEASE
  4. THERAPEUTIC RADIOPHARMACEUTICALS [Suspect]
     Indication: HODGKIN'S DISEASE
     Dosage: 18.0 GY
  5. IFOSFAMIDE [Suspect]
     Indication: HODGKIN'S DISEASE
  6. CARBOPLATIN [Suspect]
     Indication: HODGKIN'S DISEASE
  7. ETOPOSIDE [Suspect]
     Indication: HODGKIN'S DISEASE
  8. CYCLOPHOSPHAMIDE [Suspect]
     Indication: HODGKIN'S DISEASE

REACTIONS (1)
  - GASTRIC CANCER [None]
